FAERS Safety Report 5650925-4 (Version None)
Quarter: 2008Q1

REPORT INFORMATION
  Report Type: 
  Country: None (occurrence: None)
  Receive Date: 20080131
  Receipt Date: 20071101
  Transmission Date: 20080703
  Serious: No
  Sender: FDA-Public Use
  Company Number: US200711000231

PATIENT
  Age: 58 Year
  Sex: Female

DRUGS (13)
  1. BYETTA [Suspect]
     Indication: TYPE 2 DIABETES MELLITUS
     Dosage: 5 UG, 2/D, SUBCUTANEOUS ; 10 UG, 2/D, SUBCUTANEOUS
     Route: 058
     Dates: start: 20070401, end: 20070501
  2. BYETTA [Suspect]
     Indication: TYPE 2 DIABETES MELLITUS
     Dosage: 5 UG, 2/D, SUBCUTANEOUS ; 10 UG, 2/D, SUBCUTANEOUS
     Route: 058
     Dates: start: 20070501, end: 20071003
  3. METFORMIN HCL [Concomitant]
  4. AMARYL [Concomitant]
  5. AVANDIA [Concomitant]
  6. SIMVASTATIN [Concomitant]
  7. ATENOLOL [Concomitant]
  8. LEVOTHYROXINE SODIUM [Concomitant]
  9. ACTONEL [Concomitant]
  10. ASPIRIN [Concomitant]
  11. LEVEMIR (INSULIN DETEMIR) [Concomitant]
  12. NOVOLOG [Concomitant]
  13. NOVOLIN N [Concomitant]

REACTIONS (10)
  - ABDOMINAL DISCOMFORT [None]
  - ALOPECIA [None]
  - ANOREXIA [None]
  - BLOOD GLUCOSE INCREASED [None]
  - BOWEL MOVEMENT IRREGULARITY [None]
  - EARLY SATIETY [None]
  - FAECES HARD [None]
  - HAIR GROWTH ABNORMAL [None]
  - IMPAIRED GASTRIC EMPTYING [None]
  - VITAMIN D DEFICIENCY [None]
